FAERS Safety Report 8360806-3 (Version None)
Quarter: 2012Q1

REPORT INFORMATION
  Report Type: 
  Country: None (occurrence: None)
  Receive Date: 20120323
  Receipt Date: 20110126
  Transmission Date: 20120608
  Serious: Yes (Hospitalization)
  Sender: FDA-Public Use
  Company Number: 163-21880-11012765

PATIENT
  Age: 70 Year
  Sex: Female
  Weight: 73.0291 kg

DRUGS (2)
  1. REVLIMID [Suspect]
     Indication: MULTIPLE MYELOMA
     Dosage: 25 MG, DAILY X 21 DAYS, PO
     Route: 048
     Dates: start: 20100127, end: 20100217
  2. IMURAN [Concomitant]

REACTIONS (3)
  - PYREXIA [None]
  - COUGH [None]
  - PNEUMONIA [None]
